FAERS Safety Report 9529185 (Version 2)
Quarter: 2013Q3

REPORT INFORMATION
  Report Type: Not Available
  Country: US (occurrence: US)
  Receive Date: 20130916
  Receipt Date: 20130916
  Transmission Date: 20140515
  Serious: No
  Sender: FDA-Public Use
  Company Number: US-LUNDBECK-DKLU1089875

PATIENT
  Sex: Female

DRUGS (6)
  1. ONFI [Suspect]
     Indication: CONVULSION
     Dates: start: 20130318, end: 20130321
  2. ONFI [Suspect]
     Indication: TRISOMY 13
  3. KEPPRA [Concomitant]
     Indication: PRODUCT USED FOR UNKNOWN INDICATION
  4. TRILEPTAL [Concomitant]
     Indication: PRODUCT USED FOR UNKNOWN INDICATION
  5. TOPAMAX [Concomitant]
     Indication: PRODUCT USED FOR UNKNOWN INDICATION
  6. DIASTAT [Concomitant]
     Indication: PRODUCT USED FOR UNKNOWN INDICATION

REACTIONS (3)
  - Lacrimation increased [Unknown]
  - Eye swelling [Unknown]
  - Somnolence [Unknown]
